FAERS Safety Report 23940355 (Version 1)
Quarter: 2024Q2

REPORT INFORMATION
  Report Type: Spontaneous
  Country: FR (occurrence: FR)
  Receive Date: 20240605
  Receipt Date: 20240605
  Transmission Date: 20240716
  Serious: Yes (Hospitalization)
  Sender: FDA-Public Use
  Company Number: None

PATIENT
  Age: 36 Year
  Sex: Female
  Weight: 48 kg

DRUGS (3)
  1. AZTREONAM [Suspect]
     Active Substance: AZTREONAM
     Indication: Peritonitis bacterial
     Dosage: 2000 MILLIGRAM EVERY 8 HOURS FOR TWO DAYS
     Route: 042
     Dates: start: 20240416, end: 20240418
  2. LEVOFLOXACIN [Suspect]
     Active Substance: LEVOFLOXACIN
     Indication: Peritonitis bacterial
     Dosage: 500 MILLIGRAM, QD
     Route: 042
     Dates: start: 20240416
  3. LINEZOLID [Suspect]
     Active Substance: LINEZOLID
     Indication: Peritonitis bacterial
     Dosage: 600 MILLIGRAM EVERY 12 HOURS
     Route: 042
     Dates: start: 20240417, end: 20240422

REACTIONS (1)
  - Cholestatic liver injury [Not Recovered/Not Resolved]

NARRATIVE: CASE EVENT DATE: 20240422
